FAERS Safety Report 8909794 (Version 3)
Quarter: 2012Q4

REPORT INFORMATION
  Report Type: 
  Country: US (occurrence: US)
  Receive Date: 20121115
  Receipt Date: 20121228
  Transmission Date: 20130627
  Serious: Yes (Life-Threatening, Hospitalization, Congenital Anomaly, Other)
  Sender: FDA-Public Use
  Company Number: US-PFIZER INC-2012180191

PATIENT
  Age: 1 Day
  Sex: Male

DRUGS (3)
  1. ZOLOFT [Suspect]
     Dosage: UNK
     Route: 064
  2. PREDNISONE [Concomitant]
     Indication: ASTHMA
     Dosage: UNK
     Route: 064
  3. ALBUTEROL [Concomitant]
     Indication: ASTHMA
     Dosage: UNK
     Route: 064

REACTIONS (13)
  - Maternal exposure timing unspecified [Unknown]
  - Hypoplastic left heart syndrome [Unknown]
  - Congenital anomaly [Unknown]
  - Neonatal respiratory distress syndrome [Unknown]
  - Gastrointestinal disorder [Unknown]
  - Aortic valve atresia [Unknown]
  - Mitral valve atresia [Unknown]
  - Patent ductus arteriosus [Unknown]
  - Tricuspid valve incompetence [Unknown]
  - Atrial septal defect [Unknown]
  - Cyanosis neonatal [Unknown]
  - Ventricular dysfunction [Unknown]
  - Right ventricular hypertrophy [Unknown]
